FAERS Safety Report 19260421 (Version 1)
Quarter: 2021Q2

REPORT INFORMATION
  Report Type: Spontaneous
  Country: ES (occurrence: ES)
  Receive Date: 20210515
  Receipt Date: 20210515
  Transmission Date: 20210717
  Serious: Yes (Other)
  Sender: FDA-Public Use
  Company Number: ES-SA-2021SA149176

PATIENT
  Age: 62 Year
  Sex: Male
  Weight: 86 kg

DRUGS (5)
  1. LANTUS SOLOSTAR [Suspect]
     Active Substance: INSULIN GLARGINE
     Dosage: 16 IU, QD
     Route: 058
     Dates: start: 20210324
  2. OMEPRAZOLE. [Concomitant]
     Active Substance: OMEPRAZOLE
     Dosage: 20 MG GASTRO RESISTANT HARD CAPSULES GSP, 28 CAPSULES
     Route: 048
     Dates: start: 20210122
  3. HYDROCHLOROTHIAZIDE;LISINOPRIL [Concomitant]
     Active Substance: HYDROCHLOROTHIAZIDE\LISINOPRIL
     Dosage: 20 MG / 12.5 MG TABLETS, 28 TABLETS
     Route: 048
     Dates: start: 20210122
  4. SIMVASTATIN ALMUS [Concomitant]
     Dosage: 20 MG FILM COATED TABLETS GSP, 28 TABLETS
     Route: 048
     Dates: start: 20210122
  5. AMLODIPINE [Concomitant]
     Active Substance: AMLODIPINE BESYLATE
     Dosage: 5 MG ( 5 MG TABLETS, 30 TABLETS)
     Route: 048
     Dates: start: 20210122

REACTIONS (2)
  - Condition aggravated [Not Recovered/Not Resolved]
  - Migraine [Not Recovered/Not Resolved]

NARRATIVE: CASE EVENT DATE: 20210324
